FAERS Safety Report 11623525 (Version 1)
Quarter: 2015Q4

REPORT INFORMATION
  Report Type: Spontaneous
  Country: US (occurrence: US)
  Receive Date: 20151013
  Receipt Date: 20151013
  Transmission Date: 20160304
  Serious: No
  Sender: FDA-Public Use
  Company Number: US-JNJFOC-20150323569

PATIENT
  Age: 89 Year
  Sex: Female
  Weight: 68.04 kg

DRUGS (4)
  1. METAMIZOL [Concomitant]
     Active Substance: METAMIZOLE SODIUM
     Indication: THYROID DISORDER
     Route: 065
  2. QUINAPRIL [Concomitant]
     Active Substance: QUINAPRIL\QUINAPRIL HYDROCHLORIDE
     Indication: HYPERTENSION
     Route: 065
  3. DAILY VITAMINS [Concomitant]
     Indication: NUTRITIONAL SUPPLEMENTATION
     Route: 065
  4. TYLENOL EXTRA STRENGTH [Suspect]
     Active Substance: ACETAMINOPHEN
     Indication: CANCER PAIN
     Dosage: NO MORE THAN 6 TABLETS IN A 24 HOUR PERIOD
     Route: 048

REACTIONS (3)
  - Incorrect drug administration duration [Unknown]
  - Drug ineffective for unapproved indication [Unknown]
  - Product use issue [Unknown]
